FAERS Safety Report 24409851 (Version 1)
Quarter: 2024Q4

REPORT INFORMATION
  Report Type: Spontaneous
  Country: FR (occurrence: FR)
  Receive Date: 20241008
  Receipt Date: 20241008
  Transmission Date: 20250114
  Serious: Yes (Hospitalization, Other)
  Sender: AUROBINDO
  Company Number: FR-AFSSAPS-AVMP2024000261

PATIENT
  Age: 18 Year
  Sex: Male

DRUGS (4)
  1. ALPRAZOLAM [Suspect]
     Active Substance: ALPRAZOLAM
     Indication: Product used for unknown indication
     Dosage: 3 MILLIGRAM, ONCE A DAY
     Route: 048
     Dates: start: 2024
  2. CANNABIS SATIVA SUBSP. INDICA TOP [Suspect]
     Active Substance: CANNABIS SATIVA SUBSP. INDICA TOP
     Indication: Product used for unknown indication
     Dosage: UNK [5 JOINTS PAR JOUR DE ^DRY^ OU ^STATIC^DOS? ? 40% DE THC]
     Dates: start: 2022
  3. ACETAMINOPHEN\OPIUM [Suspect]
     Active Substance: ACETAMINOPHEN\OPIUM
     Indication: Product used for unknown indication
     Dosage: UNK [4/ JOUR EN ALTERNANCE AVEC OPIUM FUM? (?QUIVALENT ? 100MG D^OPIUM/JOUR)]
     Route: 048
     Dates: start: 202408
  4. OPIUM [Suspect]
     Active Substance: OPIUM
     Indication: Product used for unknown indication
     Dosage: 0.3 GRAM, ONCE A DAY
     Dates: start: 202408

REACTIONS (4)
  - Drug use disorder [Recovering/Resolving]
  - Substance use disorder [Recovering/Resolving]
  - Suicidal ideation [Recovered/Resolved]
  - Hallucination, auditory [Recovering/Resolving]

NARRATIVE: CASE EVENT DATE: 20220101
